FAERS Safety Report 6933730-8 (Version None)
Quarter: 2010Q3

REPORT INFORMATION
  Report Type: 
  Country: None (occurrence: None)
  Receive Date: 20100820
  Receipt Date: 20100805
  Transmission Date: 20110219
  Serious: Yes (Hospitalization)
  Sender: FDA-Public Use
  Company Number: US-SHIRE-SPV1-2010-00984

PATIENT

DRUGS (6)
  1. VELAGLUCERASE ALFA [Suspect]
     Indication: GAUCHER'S DISEASE
     Route: 041
     Dates: start: 20080613
  2. ALBUTEROL [Concomitant]
     Indication: BRONCHOSPASM
     Dates: start: 20070110
  3. ALBUTEROL [Concomitant]
     Indication: BRONCHIAL HYPERREACTIVITY
  4. CARBOXYMETHYLCELLULOSE SODIUM [Concomitant]
     Dosage: 2 DROPS, AS REQ'D
     Route: 061
     Dates: start: 20090220
  5. AMLODIPINE [Concomitant]
     Indication: HYPERTENSION
  6. LORAZEPAM [Concomitant]
     Indication: ANXIETY
     Dosage: .5 MG, AS REQ'D
     Route: 048
     Dates: start: 20090629

REACTIONS (1)
  - CATARACT [None]
